FAERS Safety Report 25351592 (Version 1)
Quarter: 2025Q2

REPORT INFORMATION
  Report Type: Spontaneous
  Country: CZ (occurrence: CZ)
  Receive Date: 20250523
  Receipt Date: 20250523
  Transmission Date: 20250717
  Serious: Yes (Other)
  Sender: BAUSCH AND LOMB
  Company Number: CZ-LEO Pharma-373411

PATIENT
  Age: 60 Year
  Sex: Male
  Weight: 116 kg

DRUGS (3)
  1. BRODALUMAB [Suspect]
     Active Substance: BRODALUMAB
     Indication: Psoriasis
     Dosage: 1X IN 14 DAYS ONGOING
     Route: 058
     Dates: start: 20240805
  2. CONTROLOC [Concomitant]
     Active Substance: PANTOPRAZOLE SODIUM
     Indication: Hiatus hernia
     Route: 048
  3. AMLODIPINE\INDAPAMIDE\PERINDOPRIL [Concomitant]
     Active Substance: AMLODIPINE\INDAPAMIDE\PERINDOPRIL
     Indication: Hypertension
     Route: 048

REACTIONS (2)
  - Haematochezia [Unknown]
  - Oesophageal candidiasis [Recovering/Resolving]

NARRATIVE: CASE EVENT DATE: 20240821
